FAERS Safety Report 19969542 (Version 3)
Quarter: 2021Q4

REPORT INFORMATION
  Report Type: Spontaneous
  Country: RO (occurrence: RO)
  Receive Date: 20211019
  Receipt Date: 20211116
  Transmission Date: 20220303
  Serious: Yes (Hospitalization, Other)
  Sender: FDA-Public Use
  Company Number: RO-AMGEN-ROUSP2021099751

PATIENT
  Age: 32 Year
  Sex: Male

DRUGS (1)
  1. ADALIMUMAB [Suspect]
     Active Substance: ADALIMUMAB
     Indication: Crohn^s disease
     Dosage: 40 MILLIGRAM, Q2W
     Route: 058

REACTIONS (4)
  - Skin lesion [Recovered/Resolved]
  - COVID-19 [Unknown]
  - Rash vesicular [Recovering/Resolving]
  - Asymptomatic COVID-19 [Unknown]
